FAERS Safety Report 12642304 (Version 2)
Quarter: 2016Q3

REPORT INFORMATION
  Report Type: Report from Study
  Country: US (occurrence: US)
  Receive Date: 20160810
  Receipt Date: 20160815
  Transmission Date: 20161109
  Serious: Yes (Hospitalization)
  Sender: FDA-Public Use
  Company Number: US-PFIZER INC-2016374315

PATIENT
  Age: 1 Day
  Sex: Male
  Weight: 3.7 kg

DRUGS (6)
  1. BLINDED PLACEBO [Suspect]
     Active Substance: INVESTIGATIONAL PRODUCT
     Indication: SMOKING CESSATION THERAPY
     Dosage: 4-12 CARTRIDGES DAILY (10 MG PER CARTRIDGE, UNIT WAS 4 MG DELIVERED)
     Route: 064
     Dates: start: 20160210, end: 20160315
  2. BLINDED PLACEBO [Suspect]
     Active Substance: INVESTIGATIONAL PRODUCT
     Indication: SMOKING CESSATION THERAPY
     Dosage: 4-12 CARTRIDGES DAILY (10 MG PER CARTRIDGE, UNIT WAS 4 MG DELIVERED)
     Route: 064
     Dates: start: 20160210, end: 20160315
  3. BLINDED NICOTINE [Suspect]
     Active Substance: NICOTINE
     Indication: SMOKING CESSATION THERAPY
     Dosage: 4-12 CARTRIDGES DAILY (10 MG PER CARTRIDGE, UNIT WAS 4 MG DELIVERED)
     Route: 064
     Dates: start: 20160210, end: 20160315
  4. BLINDED NICOTINE [Suspect]
     Active Substance: NICOTINE
     Indication: SMOKING CESSATION THERAPY
     Dosage: 4-12 CARTRIDGES DAILY (10 MG PER CARTRIDGE, UNIT WAS 4 MG DELIVERED)
     Route: 064
     Dates: start: 20160210, end: 20160315
  5. LAMICTAL XR [Concomitant]
     Active Substance: LAMOTRIGINE
     Indication: SEIZURE
     Dosage: 500 MG, UNK
     Route: 064
  6. SUBUTEX [Suspect]
     Active Substance: BUPRENORPHINE HYDROCHLORIDE
     Indication: DRUG DEPENDENCE
     Dosage: 16 MG, DAILY
     Route: 064

REACTIONS (2)
  - Maternal exposure during pregnancy [Recovering/Resolving]
  - Drug withdrawal syndrome neonatal [Recovering/Resolving]

NARRATIVE: CASE EVENT DATE: 20160728
